FAERS Safety Report 6685206-3 (Version None)
Quarter: 2010Q2

REPORT INFORMATION
  Report Type: 
  Country: None (occurrence: None)
  Receive Date: 20100416
  Receipt Date: 20100325
  Transmission Date: 20101027
  Serious: Yes (Death, Other)
  Sender: FDA-Public Use
  Company Number: US-BAXTER-2008BH003078

PATIENT
  Age: 53 Year
  Sex: Female
  Weight: 66 kg

DRUGS (15)
  1. HEPARIN SODIUM INJECTION [Suspect]
     Indication: THROMBOSIS PROPHYLAXIS
     Route: 042
     Dates: start: 20070709, end: 20071130
  2. ALLOPURINOL [Concomitant]
     Indication: GOUT
     Route: 048
  3. ALPRAZOLAM [Concomitant]
     Indication: DRUG USE FOR UNKNOWN INDICATION
     Route: 048
  4. PHOSLO [Concomitant]
     Indication: ELECTROLYTE IMBALANCE
     Route: 048
  5. VITAMIN C [Concomitant]
     Indication: DRUG USE FOR UNKNOWN INDICATION
     Route: 065
  6. ARANESP [Concomitant]
     Indication: DRUG USE FOR UNKNOWN INDICATION
     Route: 065
  7. PREDNISONE [Concomitant]
     Indication: DRUG USE FOR UNKNOWN INDICATION
     Route: 065
  8. PANTOPRAZOLE [Concomitant]
     Indication: DRUG USE FOR UNKNOWN INDICATION
     Route: 065
  9. AMBIEN [Concomitant]
     Indication: DRUG USE FOR UNKNOWN INDICATION
     Route: 065
  10. AMLODIPINE [Concomitant]
     Indication: BLOOD PRESSURE
     Route: 048
  11. CELEXA [Concomitant]
     Indication: DEPRESSION
     Route: 048
  12. ZETIA [Concomitant]
     Indication: BLOOD CHOLESTEROL
     Route: 048
  13. LORAZEPAM [Concomitant]
     Indication: ANXIETY
     Route: 048
  14. METOPROLOL TARTRATE [Concomitant]
     Indication: BLOOD PRESSURE
     Route: 048
  15. PRAVASTATIN [Concomitant]
     Indication: BLOOD CHOLESTEROL
     Route: 048

REACTIONS (18)
  - AIR EMBOLISM [None]
  - ANAEMIA [None]
  - ARTHRALGIA [None]
  - BLOOD PHOSPHORUS DECREASED [None]
  - CARDIO-RESPIRATORY ARREST [None]
  - DEPRESSED LEVEL OF CONSCIOUSNESS [None]
  - DIARRHOEA [None]
  - DIZZINESS [None]
  - FALL [None]
  - FATIGUE [None]
  - HYPERSENSITIVITY [None]
  - HYPOTENSION [None]
  - LIP SWELLING [None]
  - MEDICAL DEVICE COMPLICATION [None]
  - NAUSEA [None]
  - SWOLLEN TONGUE [None]
  - TACHYCARDIA [None]
  - VOMITING [None]
